FAERS Safety Report 9156639 (Version 1)
Quarter: 2013Q1

REPORT INFORMATION
  Report Type: Spontaneous
  Country: US (occurrence: None)
  Receive Date: 20130307
  Receipt Date: 20130307
  Transmission Date: 20140127
  Serious: Yes (Other)
  Sender: FDA-Public Use
  Company Number: None

PATIENT
  Age: 42 Year
  Sex: Female

DRUGS (1)
  1. ENBREL [Suspect]
     Dates: start: 20130207, end: 20130304

REACTIONS (5)
  - Abdominal pain [None]
  - Nausea [None]
  - Chills [None]
  - Urticaria [None]
  - Rhinorrhoea [None]
